FAERS Safety Report 18248807 (Version 3)
Quarter: 2020Q4

REPORT INFORMATION
  Report Type: Spontaneous
  Country: JP (occurrence: JP)
  Receive Date: 20200909
  Receipt Date: 20201123
  Transmission Date: 20210113
  Serious: Yes (Hospitalization)
  Sender: FDA-Public Use
  Company Number: JP-AMGEN-JPNSP2020145974

PATIENT
  Age: 63 Year
  Sex: Female

DRUGS (19)
  1. G-LASTA [Suspect]
     Active Substance: PEGFILGRASTIM
     Indication: COLONY STIMULATING FACTOR THERAPY
     Dosage: 3.6 MILLIGRAM, Q3WK
     Route: 058
     Dates: start: 20200729
  2. DOCETAXEL. [Concomitant]
     Active Substance: DOCETAXEL
     Indication: BREAST CANCER
     Dosage: 91.14 MG, 1X/3 WEEKS
     Route: 041
     Dates: start: 20200728
  3. ZOLPIDEM TARTRATE. [Concomitant]
     Active Substance: ZOLPIDEM TARTRATE
     Indication: PRODUCT USED FOR UNKNOWN INDICATION
     Dosage: 5 MG, PRN
     Route: 048
  4. REBAMIPIDE [Concomitant]
     Active Substance: REBAMIPIDE
     Indication: WOUND COMPLICATION
     Dosage: 1 DF, PRN
     Route: 048
     Dates: start: 20200729
  5. ZOLPIDEM TARTRATE. [Concomitant]
     Active Substance: ZOLPIDEM TARTRATE
     Indication: INSOMNIA
  6. MIYA-BM [Concomitant]
     Active Substance: CLOSTRIDIUM BUTYRICUM SPORES STRAIN M-55
     Indication: PRODUCT USED FOR UNKNOWN INDICATION
     Dosage: 2 DF, BID
     Route: 048
     Dates: start: 20200728
  7. ENDOXAN [CYCLOPHOSPHAMIDE] [Concomitant]
     Active Substance: CYCLOPHOSPHAMIDE
     Indication: BREAST CANCER
     Dosage: 729.12 MG, 1X/3 WEEKS
     Route: 041
     Dates: start: 20200728
  8. LETROZOLE. [Concomitant]
     Active Substance: LETROZOLE
     Indication: BREAST CANCER
  9. LEUCON [ADENINE] [Concomitant]
     Active Substance: ADENINE
     Indication: SUPPORTIVE CARE
  10. LANSOPRAZOLE. [Concomitant]
     Active Substance: LANSOPRAZOLE
     Indication: PRODUCT USED FOR UNKNOWN INDICATION
     Dosage: 15 MG, QD
     Route: 048
     Dates: start: 20200728
  11. LANSOPRAZOLE. [Concomitant]
     Active Substance: LANSOPRAZOLE
     Indication: SUPPORTIVE CARE
  12. LOXOPROFEN [LOXOPROFEN SODIUM] [Concomitant]
     Active Substance: LOXOPROFEN SODIUM
     Indication: WOUND COMPLICATION
     Dosage: 1 DF, PRN
     Route: 048
     Dates: start: 20200729
  13. LETROZOLE. [Concomitant]
     Active Substance: LETROZOLE
     Indication: PRODUCT USED FOR UNKNOWN INDICATION
     Dosage: 2.5 MG, QD
     Route: 048
     Dates: start: 20200520
  14. ZACRAS COMBINATION [Concomitant]
     Active Substance: AMLODIPINE BESYLATE\AZILSARTAN
     Indication: HYPERTENSION
  15. METOCLOPRAMIDE. [Concomitant]
     Active Substance: METOCLOPRAMIDE
     Indication: SUPPORTIVE CARE
  16. MIYA-BM [Concomitant]
     Active Substance: CLOSTRIDIUM BUTYRICUM SPORES STRAIN M-55
     Indication: SUPPORTIVE CARE
  17. ZACRAS COMBINATION [Concomitant]
     Active Substance: AMLODIPINE BESYLATE\AZILSARTAN
     Indication: PRODUCT USED FOR UNKNOWN INDICATION
     Dosage: 1 DF, QD
     Route: 048
  18. LEUCON [ADENINE] [Concomitant]
     Active Substance: ADENINE
     Indication: PRODUCT USED FOR UNKNOWN INDICATION
     Dosage: 2 DF, BID
     Route: 048
     Dates: start: 20200728
  19. METOCLOPRAMIDE. [Concomitant]
     Active Substance: METOCLOPRAMIDE
     Indication: PRODUCT USED FOR UNKNOWN INDICATION
     Dosage: 1 DF, BID
     Route: 048
     Dates: start: 20200728

REACTIONS (4)
  - Pyrexia [Recovering/Resolving]
  - Malaise [Recovering/Resolving]
  - Hepatic function abnormal [Recovering/Resolving]
  - Splenomegaly [Recovering/Resolving]

NARRATIVE: CASE EVENT DATE: 20200807
